FAERS Safety Report 8845491 (Version 1)
Quarter: 2012Q4

REPORT INFORMATION
  Report Type: 
  Country: US (occurrence: US)
  Receive Date: 20121017
  Receipt Date: 20121017
  Transmission Date: 20130627
  Serious: No
  Sender: FDA-Public Use
  Company Number: US-PFIZER INC-2012253878

PATIENT
  Age: 59 Year
  Sex: Female
  Weight: 95.24 kg

DRUGS (4)
  1. BOSULIF [Suspect]
     Indication: LEUKAEMIA
     Dosage: 500 mg, 1x/day
     Route: 048
     Dates: start: 20121005
  2. BENICAR HCT [Concomitant]
     Indication: HYPERTENSION
     Dosage: UNK
  3. SYNTHROID [Concomitant]
     Indication: HYPOTHYROIDISM
     Dosage: UNK
  4. VICODIN [Concomitant]
     Dosage: 500/5 mg, as needed

REACTIONS (1)
  - Diarrhoea [Unknown]
